FAERS Safety Report 9807693 (Version 1)
Quarter: 2014Q1

REPORT INFORMATION
  Report Type: Spontaneous
  Country: NO (occurrence: NO)
  Receive Date: 20140110
  Receipt Date: 20140110
  Transmission Date: 20141002
  Serious: Yes (Hospitalization)
  Sender: FDA-Public Use
  Company Number: NO-SA-2013SA131396

PATIENT
  Age: 54 Year
  Sex: Male

DRUGS (9)
  1. PLAVIX [Suspect]
     Indication: PERCUTANEOUS CORONARY INTERVENTION
     Route: 048
     Dates: start: 20130823, end: 20131105
  2. PRADAXA [Suspect]
     Indication: ATRIAL FIBRILLATION
     Route: 048
  3. ALBYL-E [Suspect]
     Indication: PERCUTANEOUS CORONARY INTERVENTION
     Route: 048
     Dates: start: 20130823, end: 20131105
  4. ENALAPRIL [Concomitant]
  5. DIGOXIN ^NYCOMED^ [Concomitant]
     Dosage: 62,5 MICROGRAM X 2 IN THE MORNING
  6. SIMVASTATIN [Concomitant]
  7. BISOPROLOL [Concomitant]
  8. BURINEX [Concomitant]
     Dosage: DOSE INCREASED
  9. SOMAC [Concomitant]
     Indication: PROPHYLAXIS AGAINST GASTROINTESTINAL ULCER
     Dosage: DOSE INCREASED
     Route: 048
     Dates: start: 201309

REACTIONS (2)
  - Gastritis [Recovering/Resolving]
  - Duodenitis [Recovering/Resolving]
